FAERS Safety Report 4493589-8 (Version None)
Quarter: 2004Q3

REPORT INFORMATION
  Report Type: 
  Country: None (occurrence: None)
  Receive Date: 20040921
  Receipt Date: 20040206
  Transmission Date: 20050211
  Serious: Yes (Death)
  Sender: FDA-Public Use
  Company Number: 163-20785-04020205

PATIENT
  Age: 40 Year
  Sex: Female
  Weight: 57.7 kg

DRUGS (4)
  1. THALOMID [Suspect]
     Indication: ANAPLASTIC ASTROCYTOMA
     Dosage: 400 MG, DAILY, ORAL
     Route: 048
     Dates: start: 20031106, end: 20040106
  2. CYCLOPHOSPHAMIDE [Suspect]
     Indication: ANAPLASTIC ASTROCYTOMA
     Dosage: 100 MG, DAILY
     Dates: start: 20031106, end: 20040106
  3. PRILOSEC [Concomitant]
  4. PAXIL [Concomitant]

REACTIONS (5)
  - AMNESIA [None]
  - ASTHENIA [None]
  - DEATH [None]
  - DISEASE PROGRESSION [None]
  - FATIGUE [None]
